FAERS Safety Report 21443436 (Version 1)
Quarter: 2022Q4

REPORT INFORMATION
  Report Type: Spontaneous
  Country: US (occurrence: US)
  Receive Date: 20221012
  Receipt Date: 20221012
  Transmission Date: 20230112
  Serious: Yes (Other)
  Sender: FDA-Public Use
  Company Number: US-CELLTRION INC.-2022US016185

PATIENT

DRUGS (3)
  1. TRUXIMA [Suspect]
     Active Substance: RITUXIMAB-ABBS
     Indication: Mantle cell lymphoma
     Dosage: 700 MILLIGRAM
  2. TRUXIMA [Suspect]
     Active Substance: RITUXIMAB-ABBS
     Dosage: 700 MILLIGRAM
     Dates: start: 20220812
  3. BENDEKA [Concomitant]
     Active Substance: BENDAMUSTINE HYDROCHLORIDE
     Indication: Mantle cell lymphoma
     Dosage: UNK
     Dates: start: 20220812

REACTIONS (2)
  - Mantle cell lymphoma [Unknown]
  - Off label use [Unknown]
